FAERS Safety Report 6329542-9 (Version None)
Quarter: 2009Q3

REPORT INFORMATION
  Report Type: 
  Country: None (occurrence: None)
  Receive Date: 20090825
  Receipt Date: 20090825
  Transmission Date: 20100115
  Serious: Yes (Hospitalization)
  Sender: FDA-Public Use
  Company Number: None

PATIENT
  Age: 20 Year
  Sex: Female
  Weight: 54.4316 kg

DRUGS (2)
  1. LAMICTAL [Suspect]
     Indication: AFFECTIVE DISORDER
     Dosage: LAMICTAL BID PO
     Route: 048
     Dates: start: 20090801, end: 20090819
  2. LAMICTAL [Suspect]
     Indication: MIGRAINE
     Dosage: LAMICTAL BID PO
     Route: 048
     Dates: start: 20090801, end: 20090819

REACTIONS (2)
  - DRUG ERUPTION [None]
  - ERYTHEMA MULTIFORME [None]
